FAERS Safety Report 16066867 (Version 1)
Quarter: 2019Q2

REPORT INFORMATION
  Report Type: Spontaneous
  Country: US (occurrence: US)
  Receive Date: 20190313
  Receipt Date: 20190313
  Transmission Date: 20190711
  Serious: Yes (Other)
  Sender: FDA-Public Use
  Company Number: None

PATIENT
  Age: 24 Year
  Sex: Female
  Weight: 103.05 kg

DRUGS (1)
  1. MONO-LINYAH [Suspect]
     Active Substance: ETHINYL ESTRADIOL\NORGESTIMATE
     Indication: CONTRACEPTION
     Route: 048
     Dates: start: 20190310, end: 20190312

REACTIONS (4)
  - Abdominal pain upper [None]
  - Chromaturia [None]
  - Rash [None]
  - Eyelid rash [None]

NARRATIVE: CASE EVENT DATE: 20190311
